FAERS Safety Report 23908199 (Version 1)
Quarter: 2024Q2

REPORT INFORMATION
  Report Type: Spontaneous
  Country: CN (occurrence: CN)
  Receive Date: 20240528
  Receipt Date: 20240528
  Transmission Date: 20240715
  Serious: Yes (Other)
  Sender: FDA-Public Use
  Company Number: CN-PFIZER INC-PV202400068557

PATIENT
  Age: 83 Year
  Sex: Male
  Weight: 60 kg

DRUGS (6)
  1. METHYLPREDNISOLONE SODIUM SUCCINATE [Suspect]
     Active Substance: METHYLPREDNISOLONE SODIUM SUCCINATE
     Indication: Chronic obstructive pulmonary disease
     Dosage: 40 MG, 1X/DAY
     Route: 041
     Dates: start: 20240522, end: 20240523
  2. METHYLPREDNISOLONE SODIUM SUCCINATE [Suspect]
     Active Substance: METHYLPREDNISOLONE SODIUM SUCCINATE
     Indication: Lower respiratory tract infection
  3. MOXIFLOXACIN HYDROCHLORIDE [Suspect]
     Active Substance: MOXIFLOXACIN HYDROCHLORIDE\MOXIFLOXACIN HYDROCHLORIDE MONOHYDRATE
     Indication: Chronic obstructive pulmonary disease
     Dosage: 0.4 G, 1X/DAY
     Route: 041
     Dates: start: 20240522, end: 20240523
  4. MOXIFLOXACIN HYDROCHLORIDE [Suspect]
     Active Substance: MOXIFLOXACIN HYDROCHLORIDE\MOXIFLOXACIN HYDROCHLORIDE MONOHYDRATE
     Indication: Lower respiratory tract infection
  5. DOXOFYLLINE [Suspect]
     Active Substance: DOXOFYLLINE
     Indication: Chronic obstructive pulmonary disease
     Dosage: 0.2 G, 1X/DAY
     Route: 041
     Dates: start: 20240522, end: 20240523
  6. DOXOFYLLINE [Suspect]
     Active Substance: DOXOFYLLINE
     Indication: Lower respiratory tract infection

REACTIONS (4)
  - Mental disorder [Recovering/Resolving]
  - Disorganised speech [Recovering/Resolving]
  - Delirium [Recovering/Resolving]
  - Emotional disorder [Recovering/Resolving]

NARRATIVE: CASE EVENT DATE: 20240523
